FAERS Safety Report 8494230-X (Version None)
Quarter: 2012Q2

REPORT INFORMATION
  Report Type: 
  Country: None (occurrence: None)
  Receive Date: 20120627
  Receipt Date: 20120618
  Transmission Date: 20120825
  Serious: Yes (Other)
  Sender: FDA-Public Use
  Company Number: 2012SP022947

PATIENT
  Sex: Female

DRUGS (3)
  1. RIBAVIRIN [Suspect]
     Indication: HEPATITIS C
     Dosage: BID ; BID
     Dates: start: 20120327
  2. VICTRELIS [Suspect]
     Indication: HEPATITIS C
     Dates: start: 20120424
  3. PEG-INTRON [Suspect]
     Indication: HEPATITIS C
     Dates: start: 20120327

REACTIONS (10)
  - DEHYDRATION [None]
  - URINARY TRACT INFECTION [None]
  - DIZZINESS [None]
  - RECTAL HAEMORRHAGE [None]
  - FATIGUE [None]
  - WHITE BLOOD CELL COUNT DECREASED [None]
  - VAGINAL HAEMORRHAGE [None]
  - GAIT DISTURBANCE [None]
  - VOMITING [None]
  - ANAEMIA [None]
